APPROVED DRUG PRODUCT: ELINEST
Active Ingredient: ETHINYL ESTRADIOL; NORGESTREL
Strength: 0.03MG;0.3MG
Dosage Form/Route: TABLET;ORAL-28
Application: A091105 | Product #001 | TE Code: AB
Applicant: NOVAST LABORATORIES LTD
Approved: Mar 28, 2012 | RLD: No | RS: No | Type: RX